FAERS Safety Report 8403453-7 (Version None)
Quarter: 2012Q2

REPORT INFORMATION
  Report Type: 
  Country: None (occurrence: None)
  Receive Date: 20120601
  Receipt Date: 20111006
  Transmission Date: 20120825
  Serious: Yes (Death, Other)
  Sender: FDA-Public Use
  Company Number: JP-BRISTOL-MYERS SQUIBB COMPANY-16076143

PATIENT
  Age: 45 Year
  Sex: Male
  Weight: 86 kg

DRUGS (10)
  1. ABILIFY [Suspect]
     Indication: SCHIZOPHRENIA
     Dosage: 3MG:05JUL-07JUL11, 6MG:08JUL-11JUL11, 9MG:12JUL-19JUL11.
     Route: 048
     Dates: start: 20110705, end: 20110719
  2. CREMIN [Suspect]
     Indication: SCHIZOPHRENIA
     Dosage: GRANULES
     Route: 048
     Dates: start: 19961001, end: 20110719
  3. LASIX [Concomitant]
     Dosage: TAB.
     Dates: start: 20090618, end: 20110707
  4. TRICHLORMETHIAZIDE [Concomitant]
     Dosage: TAB.
     Dates: start: 20100114, end: 20110719
  5. FLUDECASIN [Suspect]
     Indication: SCHIZOPHRENIA
     Route: 030
     Dates: start: 20040525, end: 20110620
  6. PROMETHAZINE HCL [Suspect]
     Indication: PARKINSONISM
     Route: 048
     Dates: start: 19961001, end: 20110719
  7. PENTONA [Suspect]
     Indication: PARKINSONISM
     Route: 048
     Dates: start: 19961001, end: 20110719
  8. AKINETON [Suspect]
     Indication: PARKINSONISM
     Route: 048
     Dates: start: 19961001, end: 20110719
  9. SYMMETREL [Suspect]
     Indication: PARKINSONISM
     Dosage: GRANULES
     Route: 048
     Dates: start: 19961001, end: 20110719
  10. DIAZEPAM [Concomitant]
     Dosage: ORAL POWDER
     Route: 048
     Dates: start: 19971014, end: 20110719

REACTIONS (5)
  - RESPIRATORY FAILURE [None]
  - RENAL IMPAIRMENT [None]
  - ILEUS [None]
  - NEUROLEPTIC MALIGNANT SYNDROME [None]
  - PNEUMONIA [None]
